FAERS Safety Report 16731346 (Version 1)
Quarter: 2019Q3

REPORT INFORMATION
  Report Type: Spontaneous
  Country: DE (occurrence: DE)
  Receive Date: 20190822
  Receipt Date: 20190822
  Transmission Date: 20191005
  Serious: Yes (Death, Hospitalization, Other)
  Sender: FDA-Public Use
  Company Number: DE-MYLANLABS-PHNU2004DE03331

PATIENT
  Age: 82 Year
  Sex: Female

DRUGS (2)
  1. PRAVIDEL (BROMOCRIPTINE) [Suspect]
     Active Substance: BROMOCRIPTINE
     Indication: PITUITARY TUMOUR
     Dosage: 30 MILLIGRAM, QD
     Route: 065
  2. PRAVIDEL (BROMOCRIPTINE) [Suspect]
     Active Substance: BROMOCRIPTINE
     Dosage: 2.5 MILLIGRAM, QD
     Route: 065

REACTIONS (3)
  - Gastrointestinal disorder [Recovered/Resolved]
  - Urosepsis [Fatal]
  - Depression [Recovered/Resolved]
